FAERS Safety Report 6699181-9 (Version None)
Quarter: 2010Q2

REPORT INFORMATION
  Report Type: 
  Country: None (occurrence: None)
  Receive Date: 20100427
  Receipt Date: 20100419
  Transmission Date: 20101027
  Serious: Yes (Death, Hospitalization)
  Sender: FDA-Public Use
  Company Number: US-TEVA-230202USA

PATIENT
  Age: 84 Year
  Sex: Female
  Weight: 59 kg

DRUGS (20)
  1. AMOXICILLIN 250 MG + 500 MG CAPSULES [Suspect]
     Indication: HELICOBACTER GASTRITIS
     Dates: end: 20100318
  2. AMOXICILLIN 250 MG + 500 MG CAPSULES [Suspect]
     Indication: GASTRIC ULCER
  3. AMOXICILLIN 250 MG + 500 MG CAPSULES [Concomitant]
  4. FEBUXOSTAT [Suspect]
     Route: 048
  5. OMEPRAZOLE [Suspect]
     Indication: HELICOBACTER GASTRITIS
     Dates: end: 20100318
  6. OMEPRAZOLE [Suspect]
     Indication: GASTRIC ULCER
  7. CLARITHROMYCIN [Suspect]
     Indication: HELICOBACTER GASTRITIS
     Dates: end: 20100318
  8. CLARITHROMYCIN [Suspect]
     Indication: GASTRIC ULCER
  9. FUROSEMIDE [Suspect]
     Indication: DRUG USE FOR UNKNOWN INDICATION
     Dates: start: 20100301
  10. FILGRASTIM [Suspect]
     Indication: DRUG USE FOR UNKNOWN INDICATION
     Dates: start: 20100301
  11. POTASSIUM [Concomitant]
     Indication: DRUG USE FOR UNKNOWN INDICATION
  12. LIDOCAINE [Concomitant]
     Indication: PAIN
  13. METOCLOPRAMIDE HYDROCHLORIDE [Concomitant]
     Indication: DRUG USE FOR UNKNOWN INDICATION
     Dosage: HS
     Dates: start: 20100318, end: 20100320
  14. MULTI-VITAMIN [Concomitant]
     Indication: DRUG USE FOR UNKNOWN INDICATION
  15. METOPROLOL SUCCINATE [Concomitant]
     Indication: HYPERTENSION
  16. VITRON C [Concomitant]
     Indication: DRUG USE FOR UNKNOWN INDICATION
  17. VICODIN [Concomitant]
     Indication: PAIN
     Dosage: AS REQUIRED
  18. BISMUTH SUBSALICYLATE [Concomitant]
     Indication: DIARRHOEA
     Dosage: AS NEEDED
  19. ONDANSETRON [Concomitant]
     Indication: NAUSEA
     Route: 042
     Dates: start: 20100317
  20. ONDANSETRON [Concomitant]
     Indication: VOMITING

REACTIONS (12)
  - ATELECTASIS [None]
  - CARDIO-RESPIRATORY ARREST [None]
  - DEHYDRATION [None]
  - NAUSEA [None]
  - NEUTROPENIA [None]
  - NON-HODGKIN'S LYMPHOMA [None]
  - PANCYTOPENIA [None]
  - PNEUMONIA [None]
  - RENAL FAILURE ACUTE [None]
  - SEPSIS [None]
  - THROMBOCYTOPENIA [None]
  - VOMITING [None]
